FAERS Safety Report 7486829-4 (Version None)
Quarter: 2011Q2

REPORT INFORMATION
  Report Type: 
  Country: None (occurrence: None)
  Receive Date: 20110517
  Receipt Date: 20110511
  Transmission Date: 20111010
  Serious: Yes (Hospitalization)
  Sender: FDA-Public Use
  Company Number: US-GILEAD-2011-0039220

PATIENT
  Sex: Female

DRUGS (5)
  1. TYVASO [Concomitant]
  2. LETAIRIS [Suspect]
     Indication: PORTOPULMONARY HYPERTENSION
     Route: 048
     Dates: start: 20110323
  3. REMODULIN [Concomitant]
  4. ADCIRCA [Concomitant]
  5. FLOLAN [Concomitant]

REACTIONS (1)
  - LOWER RESPIRATORY TRACT INFECTION BACTERIAL [None]
